FAERS Safety Report 15678184 (Version 1)
Quarter: 2018Q4

REPORT INFORMATION
  Report Type: Spontaneous
  Country: US (occurrence: US)
  Receive Date: 20181201
  Receipt Date: 20181201
  Transmission Date: 20190205
  Serious: No
  Sender: FDA-Public Use
  Company Number: US-TEVA-2018-US-981588

PATIENT
  Age: 62 Year
  Sex: Female

DRUGS (1)
  1. PROPRANOLOL HYDROCHLORIDE ACTAVIS [Suspect]
     Active Substance: PROPRANOLOL HYDROCHLORIDE

REACTIONS (4)
  - Panic attack [Unknown]
  - Product substitution issue [Unknown]
  - Palpitations [Unknown]
  - Headache [Unknown]
